FAERS Safety Report 13414222 (Version 1)
Quarter: 2017Q2

REPORT INFORMATION
  Report Type: Spontaneous
  Country: FR (occurrence: FR)
  Receive Date: 20170407
  Receipt Date: 20170407
  Transmission Date: 20170830
  Serious: Yes (Other)
  Sender: FDA-Public Use
  Company Number: FR-PFIZER INC-2017143354

PATIENT
  Age: 79 Year
  Sex: Female

DRUGS (12)
  1. NOVATREX NOS [Suspect]
     Active Substance: AZITHROMYCIN OR METHOTREXATE SODIUM
     Indication: RHEUMATOID ARTHRITIS
     Dosage: 2.5 MG, 2X/WEEK
     Route: 048
     Dates: start: 2005, end: 201509
  2. DALTEPARIN [Concomitant]
     Active Substance: DALTEPARIN
  3. CORTANCYL [Suspect]
     Active Substance: PREDNISONE
     Indication: RHEUMATOID ARTHRITIS
     Dosage: 7.5 MG, DAILY
     Route: 048
  4. ANESDERM [Concomitant]
  5. VALSARTAN. [Concomitant]
     Active Substance: VALSARTAN
  6. CONTRAMAL [Concomitant]
     Active Substance: TRAMADOL HYDROCHLORIDE
  7. NOVATREX NOS [Suspect]
     Active Substance: AZITHROMYCIN OR METHOTREXATE SODIUM
     Dosage: 15 MG, WEEKLY
     Dates: start: 201509, end: 20151201
  8. ASPEGIC [Concomitant]
     Active Substance: ASPIRIN DL-LYSINE
  9. INEXIUM /01479302/ [Concomitant]
     Active Substance: ESOMEPRAZOLE MAGNESIUM
  10. LASILIX /00032601/ [Concomitant]
     Active Substance: FUROSEMIDE
  11. LEVOTHYROX [Concomitant]
     Active Substance: LEVOTHYROXINE
  12. PARACETAMOL [Concomitant]
     Active Substance: ACETAMINOPHEN

REACTIONS (1)
  - Cervix carcinoma [Recovered/Resolved]

NARRATIVE: CASE EVENT DATE: 201503
